FAERS Safety Report 7372921-1 (Version None)
Quarter: 2011Q1

REPORT INFORMATION
  Report Type: 
  Country: None (occurrence: None)
  Receive Date: 20110324
  Receipt Date: 20110323
  Transmission Date: 20110831
  Serious: Yes (Other)
  Sender: FDA-Public Use
  Company Number: US-PFIZER INC-2011064902

PATIENT
  Sex: Female
  Weight: 47.619 kg

DRUGS (3)
  1. CHANTIX [Suspect]
     Indication: SMOKING CESSATION THERAPY
     Dosage: 0.5 MG, 1X/DAY
     Route: 048
     Dates: start: 20101111, end: 20100101
  2. HYDROCODONE [Concomitant]
     Indication: BACK DISORDER
     Dosage: 7.5 MG, AS NEEDED
     Route: 048
  3. CHANTIX [Suspect]
     Dosage: 1 MG, 2X/DAY
     Route: 048
     Dates: start: 20100101, end: 20101226

REACTIONS (6)
  - AMNESIA [None]
  - DISTURBANCE IN ATTENTION [None]
  - DEPRESSION [None]
  - ANXIETY [None]
  - FORMICATION [None]
  - AGITATION [None]
